FAERS Safety Report 11213158 (Version 1)
Quarter: 2015Q2

REPORT INFORMATION
  Report Type: Spontaneous
  Country: US (occurrence: US)
  Receive Date: 20150623
  Receipt Date: 20150623
  Transmission Date: 20150821
  Serious: No
  Sender: FDA-Public Use
  Company Number: US-TARO-2014TAR00316

PATIENT
  Age: 42 Month
  Sex: Female
  Weight: 15.42 kg

DRUGS (2)
  1. CETIRIZINE HCL [Suspect]
     Active Substance: CETIRIZINE HYDROCHLORIDE
     Indication: HYPERSENSITIVITY
     Dosage: 5 ML, 1X/DAY
     Route: 048
     Dates: start: 201404
  2. CLARITIN [Concomitant]
     Active Substance: LORATADINE
     Dosage: 5 ML, 1X/DAY

REACTIONS (1)
  - Ear discomfort [Recovering/Resolving]

NARRATIVE: CASE EVENT DATE: 20140902
